FAERS Safety Report 9222164 (Version 1)
Quarter: 2013Q2

REPORT INFORMATION
  Report Type: Spontaneous
  Country: JP (occurrence: JP)
  Receive Date: 20130410
  Receipt Date: 20130410
  Transmission Date: 20140414
  Serious: Yes (Death, Other)
  Sender: FDA-Public Use
  Company Number: JP-ASTELLAS-2013JP004763

PATIENT
  Sex: 0

DRUGS (5)
  1. PROTOPIC [Suspect]
     Dosage: 0.1 %, UNK
     Route: 061
  2. ALLEGRA [Concomitant]
     Route: 048
  3. SPIRAZON [Concomitant]
     Route: 061
  4. LIDOMEX [Concomitant]
     Route: 061
  5. LOXONIN [Concomitant]
     Route: 061

REACTIONS (3)
  - Death [Fatal]
  - Sarcoma [Unknown]
  - Malignant neoplasm of unknown primary site [Unknown]
